FAERS Safety Report 5512725-5 (Version None)
Quarter: 2007Q4

REPORT INFORMATION
  Report Type: 
  Country: None (occurrence: None)
  Receive Date: 20071108
  Receipt Date: 20070627
  Transmission Date: 20080405
  Serious: Yes (Other)
  Sender: FDA-Public Use
  Company Number: 2007MP000499

PATIENT

DRUGS (2)
  1. GLIADEL [Suspect]
     Indication: GLIOBLASTOMA MULTIFORME
     Dosage: ;X1;ICER
  2. TEMOZOLOMIDE [Concomitant]

REACTIONS (7)
  - BRAIN OEDEMA [None]
  - CONFUSIONAL STATE [None]
  - DRUG TOXICITY [None]
  - ENCEPHALITIS [None]
  - GLIOBLASTOMA MULTIFORME [None]
  - MALIGNANT NEOPLASM PROGRESSION [None]
  - PSYCHOTIC DISORDER [None]
